FAERS Safety Report 22636635 (Version 1)
Quarter: 2023Q2

REPORT INFORMATION
  Report Type: Report from Study
  Country: CN (occurrence: CN)
  Receive Date: 20230623
  Receipt Date: 20230623
  Transmission Date: 20230721
  Serious: No
  Sender: FDA-Public Use
  Company Number: CN-PFIZER INC-PV202300108376

PATIENT
  Age: 48 Year
  Sex: Female

DRUGS (8)
  1. NIRMATRELVIR\RITONAVIR [Suspect]
     Active Substance: NIRMATRELVIR\RITONAVIR
     Indication: COVID-19 treatment
     Dosage: [NIRMATRELVIR 300 MG]/[RITONAVIR 100 MG], 2X/DAY
     Dates: start: 20220520, end: 20220529
  2. HERBALS\MENTHOL [Concomitant]
     Active Substance: HERBALS\MENTHOL
     Indication: COVID-19 treatment
     Dosage: UNK
     Route: 048
     Dates: start: 20220518
  3. THYMALFASIN [Concomitant]
     Active Substance: THYMALFASIN
     Indication: COVID-19 treatment
     Dosage: UNK
     Route: 058
     Dates: start: 20220519, end: 20220603
  4. IBUPROFEN [Concomitant]
     Active Substance: IBUPROFEN
     Indication: COVID-19 treatment
     Dosage: UNK
     Route: 048
     Dates: start: 20220519, end: 20220603
  5. NADROPARIN CALCIUM [Concomitant]
     Active Substance: NADROPARIN CALCIUM
     Indication: COVID-19 treatment
     Dosage: UNK
     Route: 058
     Dates: start: 20220519, end: 20220603
  6. CARBOHYDRATES\FATTY ACIDS\MINERALS\PROTEIN\VITAMINS [Concomitant]
     Active Substance: CARBOHYDRATES\FATTY ACIDS\MINERALS\PROTEIN\VITAMINS
     Dosage: UNK
     Route: 048
     Dates: start: 20220818
  7. CALCIUM CARBONATE [Concomitant]
     Active Substance: CALCIUM CARBONATE
     Indication: Blood calcium decreased
     Dosage: UNK
     Route: 048
     Dates: start: 20220519
  8. PHOSPHOLIPID [Concomitant]
     Active Substance: PHOSPHOLIPID
     Indication: Symptomatic treatment
     Dosage: UNK
     Route: 048
     Dates: start: 20220531, end: 20220531

REACTIONS (2)
  - Liver injury [Unknown]
  - Inappropriate schedule of product administration [Unknown]

NARRATIVE: CASE EVENT DATE: 20220520
